FAERS Safety Report 8236916-8 (Version None)
Quarter: 2012Q1

REPORT INFORMATION
  Report Type: 
  Country: None (occurrence: None)
  Receive Date: 20120327
  Receipt Date: 20120322
  Transmission Date: 20120608
  Serious: Yes (Death, Life-Threatening, Other)
  Sender: FDA-Public Use
  Company Number: TW-BAYER-2012-028236

PATIENT
  Age: 65 Year
  Sex: Female

DRUGS (2)
  1. CIPROFLOXACIN HCL [Suspect]
     Indication: URINARY TRACT INFECTION
  2. CIPROFLOXACIN HCL [Suspect]
     Indication: SEPSIS
     Dosage: 200 MG, QD
     Dates: start: 20120303, end: 20120304

REACTIONS (2)
  - CONVULSION [None]
  - MULTI-ORGAN FAILURE [None]
